FAERS Safety Report 10355576 (Version 2)
Quarter: 2014Q3

REPORT INFORMATION
  Report Type: Spontaneous
  Country: US (occurrence: US)
  Receive Date: 20140731
  Receipt Date: 20140830
  Transmission Date: 20150326
  Serious: No
  Sender: FDA-Public Use
  Company Number: US-009507513-1407USA010717

PATIENT
  Sex: Female
  Weight: 52.15 kg

DRUGS (4)
  1. CLARITIN-D 12 HOUR [Suspect]
     Active Substance: LORATADINE\PSEUDOEPHEDRINE SULFATE
     Dosage: UNK
  2. ALAWAY [Concomitant]
     Active Substance: KETOTIFEN FUMARATE
     Indication: HOUSE DUST ALLERGY
     Dosage: UNK, UNKNOWN
  3. CLARITIN-D 12 HOUR [Suspect]
     Active Substance: LORATADINE\PSEUDOEPHEDRINE SULFATE
     Indication: HOUSE DUST ALLERGY
     Dosage: 5 MG, QAM
     Route: 048
     Dates: start: 2014, end: 201407
  4. CLARITIN-D 12 HOUR [Suspect]
     Active Substance: LORATADINE\PSEUDOEPHEDRINE SULFATE
     Dosage: UNK

REACTIONS (3)
  - Hypoaesthesia oral [Recovered/Resolved]
  - Adverse drug reaction [Recovered/Resolved]
  - Dry mouth [Recovered/Resolved]

NARRATIVE: CASE EVENT DATE: 2014
